FAERS Safety Report 25265129 (Version 1)
Quarter: 2025Q2

REPORT INFORMATION
  Report Type: Spontaneous
  Country: US (occurrence: US)
  Receive Date: 20250502
  Receipt Date: 20250502
  Transmission Date: 20250717
  Serious: No
  Sender: MYLAN
  Company Number: US-MYLANLABS-2025M1037469

PATIENT
  Age: 35 Year
  Sex: Female

DRUGS (20)
  1. SERTRALINE [Interacting]
     Active Substance: SERTRALINE HYDROCHLORIDE
     Indication: Product used for unknown indication
  2. SERTRALINE [Interacting]
     Active Substance: SERTRALINE HYDROCHLORIDE
  3. SERTRALINE [Interacting]
     Active Substance: SERTRALINE HYDROCHLORIDE
     Route: 065
  4. SERTRALINE [Interacting]
     Active Substance: SERTRALINE HYDROCHLORIDE
     Route: 065
  5. SERTRALINE [Interacting]
     Active Substance: SERTRALINE HYDROCHLORIDE
  6. SERTRALINE [Interacting]
     Active Substance: SERTRALINE HYDROCHLORIDE
  7. SERTRALINE [Interacting]
     Active Substance: SERTRALINE HYDROCHLORIDE
     Route: 065
  8. SERTRALINE [Interacting]
     Active Substance: SERTRALINE HYDROCHLORIDE
     Route: 065
  9. AYVAKIT [Interacting]
     Active Substance: AVAPRITINIB
     Indication: Mastocytoma
     Dosage: 200 MILLIGRAM, QD (ONCE DAILY)
     Dates: start: 20211214
  10. AYVAKIT [Interacting]
     Active Substance: AVAPRITINIB
     Dosage: 200 MILLIGRAM, QD (ONCE DAILY)
     Dates: start: 20211214
  11. AYVAKIT [Interacting]
     Active Substance: AVAPRITINIB
     Dosage: 200 MILLIGRAM, QD (ONCE DAILY)
     Route: 065
     Dates: start: 20211214
  12. AYVAKIT [Interacting]
     Active Substance: AVAPRITINIB
     Dosage: 200 MILLIGRAM, QD (ONCE DAILY)
     Route: 065
     Dates: start: 20211214
  13. AYVAKIT [Interacting]
     Active Substance: AVAPRITINIB
     Dosage: 100 MILLIGRAM, QD (ONCE DAILY, DOSE DECREASED)
  14. AYVAKIT [Interacting]
     Active Substance: AVAPRITINIB
     Dosage: 100 MILLIGRAM, QD (ONCE DAILY, DOSE DECREASED)
  15. AYVAKIT [Interacting]
     Active Substance: AVAPRITINIB
     Dosage: 100 MILLIGRAM, QD (ONCE DAILY, DOSE DECREASED)
     Route: 065
  16. AYVAKIT [Interacting]
     Active Substance: AVAPRITINIB
     Dosage: 100 MILLIGRAM, QD (ONCE DAILY, DOSE DECREASED)
     Route: 065
  17. AYVAKIT [Interacting]
     Active Substance: AVAPRITINIB
     Dosage: 200 MILLIGRAM, QD (ONCE DAILY)
  18. AYVAKIT [Interacting]
     Active Substance: AVAPRITINIB
     Dosage: 200 MILLIGRAM, QD (ONCE DAILY)
     Route: 065
  19. AYVAKIT [Interacting]
     Active Substance: AVAPRITINIB
     Dosage: 200 MILLIGRAM, QD (ONCE DAILY)
  20. AYVAKIT [Interacting]
     Active Substance: AVAPRITINIB
     Dosage: 200 MILLIGRAM, QD (ONCE DAILY)
     Route: 065

REACTIONS (2)
  - Emotional poverty [Unknown]
  - Drug interaction [Unknown]
